FAERS Safety Report 9222611 (Version 1)
Quarter: 2013Q2

REPORT INFORMATION
  Report Type: Spontaneous
  Country: CO (occurrence: CO)
  Receive Date: 20130410
  Receipt Date: 20130410
  Transmission Date: 20140414
  Serious: Yes (Other)
  Sender: FDA-Public Use
  Company Number: CO-PFIZER INC-2012292673

PATIENT
  Age: 52 Year
  Sex: Female

DRUGS (5)
  1. LYRICA [Suspect]
     Indication: FIBROMYALGIA
     Dosage: 75 MG, 1X/DAY
     Route: 048
     Dates: start: 20120827, end: 201302
  2. PRISTIQ [Suspect]
     Indication: DEPRESSION
     Dosage: 1X/DAY
     Route: 048
     Dates: start: 2012
  3. RIVOTRIL [Concomitant]
     Indication: INSOMNIA
     Dosage: 6 DROPS EVERY NIGHT
     Route: 048
     Dates: start: 2012
  4. RIVOTRIL [Concomitant]
     Indication: DEPRESSION
  5. PAROXETINE [Concomitant]
     Indication: ANXIETY
     Dosage: 20 MG, 1X/DAY
     Dates: start: 20120827

REACTIONS (5)
  - Dysphagia [Not Recovered/Not Resolved]
  - Vulvovaginal dryness [Recovered/Resolved]
  - Osteoarthritis [Not Recovered/Not Resolved]
  - Drug ineffective [Not Recovered/Not Resolved]
  - Dry throat [Not Recovered/Not Resolved]
